FAERS Safety Report 8223986-6 (Version None)
Quarter: 2012Q1

REPORT INFORMATION
  Report Type: 
  Country: None (occurrence: None)
  Receive Date: 20120321
  Receipt Date: 20120315
  Transmission Date: 20120608
  Serious: Yes (Hospitalization, Other)
  Sender: FDA-Public Use
  Company Number: PHHY2012MX023749

PATIENT
  Sex: Female

DRUGS (3)
  1. DIOVAN [Suspect]
     Dosage: 0.5 DF (160 MG VALSARTAN) DAILY
     Dates: start: 20111101
  2. DIOVAN [Suspect]
     Indication: HYPERTENSION
     Dosage: 160 MG, DAILY
     Dates: start: 20090101, end: 20110701
  3. DIOVAN [Suspect]
     Dosage: 80 MG, DAILY
     Dates: start: 20120229

REACTIONS (4)
  - GASTROINTESTINAL DISORDER [None]
  - HYPOTENSION [None]
  - WRONG TECHNIQUE IN DRUG USAGE PROCESS [None]
  - PYREXIA [None]
